FAERS Safety Report 7266592-2 (Version None)
Quarter: 2011Q1

REPORT INFORMATION
  Report Type: 
  Country: None (occurrence: None)
  Receive Date: 20110131
  Receipt Date: 20110127
  Transmission Date: 20110831
  Serious: Yes (Life-Threatening)
  Sender: FDA-Public Use
  Company Number: FR-MERCK-1101USA03263

PATIENT
  Age: 69 Year
  Sex: Female

DRUGS (6)
  1. ZOPHREN [Suspect]
     Route: 048
     Dates: start: 20061102, end: 20061105
  2. DOXORUBICIN HYDROCHLORIDE [Suspect]
     Route: 042
     Dates: start: 20061031, end: 20061031
  3. NEULASTA [Suspect]
     Indication: CHEMOTHERAPY
     Route: 058
     Dates: start: 20061101
  4. METOCLOPRAMIDE [Concomitant]
     Route: 065
  5. EMEND [Suspect]
     Route: 048
     Dates: start: 20061031, end: 20061102
  6. CARBOPLATIN [Suspect]
     Route: 042
     Dates: start: 20061031, end: 20061031

REACTIONS (2)
  - PHARYNGEAL OEDEMA [None]
  - APHAGIA [None]
